FAERS Safety Report 7658731-6 (Version None)
Quarter: 2011Q3

REPORT INFORMATION
  Report Type: 
  Country: None (occurrence: None)
  Receive Date: 20110805
  Receipt Date: 20110802
  Transmission Date: 20111222
  Serious: Yes (Other)
  Sender: FDA-Public Use
  Company Number: FR-SANOFI-AVENTIS-2011SA028673

PATIENT
  Age: 80 Year
  Sex: Male
  Weight: 103 kg

DRUGS (7)
  1. MULTAQ [Suspect]
     Indication: ATRIAL FIBRILLATION
     Route: 048
     Dates: start: 20101103, end: 20110301
  2. PREDNISONE [Concomitant]
     Route: 048
  3. EZETIMIBE [Concomitant]
     Route: 048
  4. LEVOTHYROXINE SODIUM [Concomitant]
     Route: 048
  5. FUROSEMIDE [Concomitant]
     Route: 048
  6. ASPIRIN [Concomitant]
     Route: 048
  7. CANDESARTAN CILEXETIL [Concomitant]
     Route: 048

REACTIONS (3)
  - LEUKOPENIA [None]
  - LYMPHOPENIA [None]
  - THROMBOCYTOPENIA [None]
